FAERS Safety Report 7496100-2 (Version None)
Quarter: 2011Q2

REPORT INFORMATION
  Report Type: 
  Country: None (occurrence: None)
  Receive Date: 20110513
  Receipt Date: 20110503
  Transmission Date: 20111010
  Serious: Yes (Other)
  Sender: FDA-Public Use
  Company Number: MC201100051

PATIENT
  Age: 62 Year
  Sex: Male

DRUGS (3)
  1. ANGIOMAX [Suspect]
     Indication: PERCUTANEOUS CORONARY INTERVENTION
     Dosage: 0.75, 1.75 MG/KG, BOLUS, INTRAVENOUS
     Route: 042
  2. ASPIRIN [Concomitant]
  3. PLAVIX [Concomitant]

REACTIONS (6)
  - CARDIAC TAMPONADE [None]
  - IATROGENIC INJURY [None]
  - CORONARY ARTERY OCCLUSION [None]
  - CARDIAC FAILURE CONGESTIVE [None]
  - CORONARY ARTERY PERFORATION [None]
  - DEVICE OCCLUSION [None]
